FAERS Safety Report 8763912 (Version 3)
Quarter: 2013Q1

REPORT INFORMATION
  Report Type: Spontaneous
  Country: JP (occurrence: JP)
  Receive Date: 20120831
  Receipt Date: 20130205
  Transmission Date: 20140127
  Serious: No
  Sender: FDA-Public Use
  Company Number: JP-ELI_LILLY_AND_COMPANY-JP201202005782

PATIENT
  Sex: Female

DRUGS (3)
  1. FORTEO [Suspect]
     Dosage: UNK
     Route: 058
     Dates: start: 201108, end: 20121118
  2. FORTEO [Suspect]
     Dosage: UNK
     Route: 058
  3. FORTEO [Suspect]
     Dosage: UNK
     Route: 058

REACTIONS (11)
  - Medication error [Unknown]
  - Hypoacusis [Unknown]
  - Dizziness [Unknown]
  - Incorrect storage of drug [Unknown]
  - Pyrexia [Unknown]
  - Tongue disorder [Unknown]
  - Decreased appetite [Unknown]
  - Weight decreased [Unknown]
  - Abdominal discomfort [Recovered/Resolved]
  - White blood cell disorder [Recovered/Resolved]
  - Dental caries [Unknown]
